FAERS Safety Report 19278526 (Version 1)
Quarter: 2021Q2

REPORT INFORMATION
  Report Type: Spontaneous
  Country: US (occurrence: US)
  Receive Date: 20210520
  Receipt Date: 20210520
  Transmission Date: 20210717
  Serious: No
  Sender: FDA-Public Use
  Company Number: US-CELLTRION INC.-2021US004500

PATIENT

DRUGS (3)
  1. TRUXIMA [Suspect]
     Active Substance: RITUXIMAB-ABBS
     Indication: RHEUMATOID ARTHRITIS
     Dosage: 1000 MG, DILUTED IN 0.9% NORMAL SALINE (FREQUENCY: UNKNOWN)
     Route: 042
     Dates: start: 20200917
  2. SOLU?MEDROL [Concomitant]
     Active Substance: METHYLPREDNISOLONE SODIUM SUCCINATE
     Indication: PREMEDICATION
  3. TRUXIMA [Suspect]
     Active Substance: RITUXIMAB-ABBS
     Dosage: 1000 MG, DILUTED IN 0.9% NORMAL SALINE (FREQUENCY: UNKNOWN)
     Route: 042
     Dates: start: 20201001

REACTIONS (2)
  - Insomnia [Unknown]
  - Off label use [Unknown]
